FAERS Safety Report 7707227-1 (Version None)
Quarter: 2011Q3

REPORT INFORMATION
  Report Type: 
  Country: None (occurrence: None)
  Receive Date: 20110824
  Receipt Date: 20110811
  Transmission Date: 20111222
  Serious: Yes (Hospitalization, Other)
  Sender: FDA-Public Use
  Company Number: PHHY2011JP72845

PATIENT
  Age: 77 Year
  Sex: Female

DRUGS (5)
  1. TELMISARTAN [Concomitant]
     Dosage: UNK
     Route: 048
  2. CADUET NO.3 [Concomitant]
     Dosage: UNK
     Route: 048
  3. RASILEZ [Suspect]
     Indication: BLOOD PRESSURE INADEQUATELY CONTROLLED
     Dosage: UNK
     Route: 048
  4. LIPIDIL [Concomitant]
     Dosage: UNK
  5. AMLODIPINE [Concomitant]
     Dosage: UNK
     Route: 048

REACTIONS (4)
  - GAMMA-GLUTAMYLTRANSFERASE INCREASED [None]
  - BLOOD BILIRUBIN INCREASED [None]
  - GLOMERULAR FILTRATION RATE DECREASED [None]
  - BLOOD ALKALINE PHOSPHATASE INCREASED [None]
